FAERS Safety Report 5110097-1 (Version None)
Quarter: 2006Q3

REPORT INFORMATION
  Report Type: 
  Country: None (occurrence: None)
  Receive Date: 20060919
  Receipt Date: 20060919
  Transmission Date: 20061208
  Serious: Yes (Other)
  Sender: FDA-Public Use
  Company Number: None

PATIENT
  Sex: Female
  Weight: 70.3075 kg

DRUGS (1)
  1. COMMIT [Suspect]
     Indication: SMOKING CESSATION THERAPY
     Dosage: 1 LOZENGE EVERY 1-2 HOURS PO
     Route: 048
     Dates: start: 20060814, end: 20060904

REACTIONS (3)
  - ORAL INFECTION [None]
  - OSTEOMYELITIS [None]
  - TOOTH INFECTION [None]
